FAERS Safety Report 6534082-8 (Version None)
Quarter: 2010Q1

REPORT INFORMATION
  Report Type: 
  Country: None (occurrence: None)
  Receive Date: 20100112
  Receipt Date: 20100106
  Transmission Date: 20100710
  Serious: Yes (Hospitalization, Other)
  Sender: FDA-Public Use
  Company Number: PHEH2008US07501

PATIENT
  Sex: Female
  Weight: 67.12 kg

DRUGS (15)
  1. ZELNORM [Suspect]
     Indication: CONSTIPATION
     Dosage: 6 MG, BID
  2. COZAAR [Concomitant]
  3. TOPROL-XL [Concomitant]
  4. LIPITOR [Concomitant]
  5. LISINOPRIL [Concomitant]
  6. PLAVIX [Concomitant]
  7. BYETTA [Concomitant]
  8. ASPIRIN [Concomitant]
  9. METFORMIN HYDROCHLORIDE [Concomitant]
  10. DILAUDID [Concomitant]
  11. PERDIEM [Concomitant]
     Indication: CONSTIPATION
  12. NIASPAN [Concomitant]
  13. NITROGLYCERIN [Concomitant]
  14. ATENOLOL [Concomitant]
     Dosage: 25 MG, UNK
  15. HEPARIN [Concomitant]

REACTIONS (3)
  - CATHETERISATION CARDIAC [None]
  - INJURY [None]
  - MYOCARDIAL INFARCTION [None]
